FAERS Safety Report 4703226-2 (Version None)
Quarter: 2005Q2

REPORT INFORMATION
  Report Type: 
  Country: None (occurrence: None)
  Receive Date: 20050628
  Receipt Date: 20050615
  Transmission Date: 20051028
  Serious: Yes (Other)
  Sender: FDA-Public Use
  Company Number: 2005088980

PATIENT
  Age: 26 Year
  Sex: Male

DRUGS (4)
  1. ZYVOX [Suspect]
     Indication: TUBERCULOSIS
     Dosage: 600 MG (600 MG, 1 IN 1 D), INTRAVENOUS
     Route: 042
     Dates: start: 20050101
  2. ONDANSETRON HCL [Concomitant]
  3. PYRAZINAMIDE [Concomitant]
  4. AMINOSALICYLATE SODIUM (AMINOSALICYLATE SODIUM) [Concomitant]

REACTIONS (2)
  - ATRIOVENTRICULAR BLOCK SECOND DEGREE [None]
  - DIZZINESS [None]
